FAERS Safety Report 18468152 (Version 1)
Quarter: 2020Q4

REPORT INFORMATION
  Report Type: Spontaneous
  Country: US (occurrence: US)
  Receive Date: 20201105
  Receipt Date: 20201105
  Transmission Date: 20210114
  Serious: Yes (Hospitalization, Other)
  Sender: FDA-Public Use
  Company Number: US-MYLANLABS-2020M1092358

PATIENT
  Age: 93 Year
  Sex: Male

DRUGS (1)
  1. CLOPIDOGREL [Suspect]
     Active Substance: CLOPIDOGREL BISULFATE
     Indication: ANTIPLATELET THERAPY
     Route: 065

REACTIONS (5)
  - Ischaemic cerebral infarction [Unknown]
  - Anaemia [Unknown]
  - Hypotension [Unknown]
  - Gastrointestinal haemorrhage [Unknown]
  - Epistaxis [Not Recovered/Not Resolved]
